FAERS Safety Report 7118349-0 (Version None)
Quarter: 2010Q4

REPORT INFORMATION
  Report Type: 
  Country: None (occurrence: None)
  Receive Date: 20101123
  Receipt Date: 20101118
  Transmission Date: 20110411
  Serious: Yes (Death, Life-Threatening, Hospitalization)
  Sender: FDA-Public Use
  Company Number: PHHY2010ES78245

PATIENT
  Age: 83 Year
  Sex: Male

DRUGS (1)
  1. SANDOSTATIN LAR [Suspect]
     Indication: NEUROENDOCRINE TUMOUR
     Dosage: 30MG EVERY 28 DAYS
     Route: 030
     Dates: start: 20091101, end: 20101102

REACTIONS (3)
  - DYSPNOEA [None]
  - MALAISE [None]
  - RESPIRATORY FAILURE [None]
